FAERS Safety Report 7563662-6 (Version None)
Quarter: 2011Q2

REPORT INFORMATION
  Report Type: 
  Country: None (occurrence: None)
  Receive Date: 20110622
  Receipt Date: 20110609
  Transmission Date: 20111010
  Serious: Yes (Hospitalization)
  Sender: FDA-Public Use
  Company Number: MY-ROCHE-781265

PATIENT
  Sex: Female

DRUGS (14)
  1. CALCIUM CARBONATE [Concomitant]
     Dates: start: 20101216
  2. PREDNISOLONE [Concomitant]
     Dates: start: 20110401
  3. METHOXY POLYETHYLENE GLYCOL-EPOETIN BETA [Suspect]
     Dosage: LAST DOSE PRIOR TO SAE 12 MAY 2011.
     Route: 058
     Dates: start: 20110314
  4. METHOXY POLYETHYLENE GLYCOL-EPOETIN BETA [Suspect]
     Dosage: LAST DOSE PRIOR TO SAE: 14 FEBRUARY 2011.
     Route: 058
     Dates: start: 20110214
  5. VITAMIN B COMPLEX CAP [Concomitant]
     Dates: start: 20101216
  6. PRAZOSIN HCL [Concomitant]
     Dates: start: 20110606
  7. ROCALTROL [Concomitant]
     Dates: start: 20110322
  8. SLOW-K [Concomitant]
     Dates: start: 20110301
  9. FOLIC ACID [Concomitant]
     Dates: start: 20101216
  10. MICARDIS [Concomitant]
     Dates: start: 20110512
  11. MICARDIS [Concomitant]
     Dates: start: 20110314, end: 20110512
  12. SIMVASTATIN [Concomitant]
     Dates: start: 20110322
  13. TRAMADOL HCL [Concomitant]
     Dates: start: 20110530
  14. PRAZOSIN HCL [Concomitant]
     Dates: start: 20110530, end: 20110606

REACTIONS (1)
  - HYPERTENSIVE CRISIS [None]
